FAERS Safety Report 6407412-5 (Version None)
Quarter: 2009Q4

REPORT INFORMATION
  Report Type: 
  Country: None (occurrence: None)
  Receive Date: 20091020
  Receipt Date: 20091008
  Transmission Date: 20100525
  Serious: Yes (Hospitalization)
  Sender: FDA-Public Use
  Company Number: CH-SANOFI-SYNTHELABO-A01200910571

PATIENT
  Age: 78 Year
  Sex: Female
  Weight: 57 kg

DRUGS (13)
  1. NORVASC [Suspect]
     Indication: ESSENTIAL HYPERTENSION
     Route: 048
  2. TENORMIN [Concomitant]
     Indication: ESSENTIAL HYPERTENSION
     Route: 048
  3. DEXAMETHASONE 0.5MG TAB [Concomitant]
     Indication: TRIGEMINAL NEURALGIA
     Route: 048
     Dates: start: 20090601
  4. ACETAMINOPHEN [Concomitant]
     Indication: TRIGEMINAL NEURALGIA
     Route: 048
  5. OXYCONTIN [Suspect]
     Indication: TRIGEMINAL NEURALGIA
     Route: 048
     Dates: start: 20090801
  6. NEURODOL [Concomitant]
     Indication: TRIGEMINAL NEURALGIA
     Route: 062
  7. NEXIUM [Interacting]
     Indication: DRUG USE FOR UNKNOWN INDICATION
     Route: 048
     Dates: start: 20090601
  8. TEGRETOL [Suspect]
     Indication: TRIGEMINAL NEURALGIA
     Route: 048
  9. NEURONTIN [Suspect]
     Indication: TRIGEMINAL NEURALGIA
     Route: 048
  10. OXYNORM [Suspect]
     Indication: TRIGEMINAL NEURALGIA
     Dosage: 6 UNIT DOSES PER DAY
     Route: 048
     Dates: start: 20090801
  11. PHENHYDAN [Interacting]
     Indication: TRIGEMINAL NEURALGIA
     Dosage: 200-50-150 MG IN THREE DOSES PER DAY.
     Route: 048
     Dates: start: 20090501, end: 20090909
  12. ZOLPIDEM [Suspect]
     Indication: TRIGEMINAL NEURALGIA
     Route: 048
  13. RIVOTRIL [Suspect]
     Indication: TRIGEMINAL NEURALGIA
     Route: 048
     Dates: end: 20090909

REACTIONS (4)
  - BALANCE DISORDER [None]
  - DRUG LEVEL ABOVE THERAPEUTIC [None]
  - INCORRECT DOSE ADMINISTERED [None]
  - SOMNOLENCE [None]
